FAERS Safety Report 4766357-7 (Version None)
Quarter: 2005Q3

REPORT INFORMATION
  Report Type: 
  Country: None (occurrence: None)
  Receive Date: 20050909
  Receipt Date: 20050826
  Transmission Date: 20060218
  Serious: Yes (Hospitalization, Other)
  Sender: FDA-Public Use
  Company Number: 2005P1000272

PATIENT
  Age: 57 Year
  Sex: Female

DRUGS (12)
  1. RETEVASE [Suspect]
     Indication: MYOCARDIAL INFARCTION
     Dosage: IV
     Route: 042
     Dates: start: 20050412, end: 20050412
  2. ABCIXIMAB (ABCIXIMAB) [Suspect]
     Indication: MYOCARDIAL INFARCTION
     Dosage: IV
     Route: 042
     Dates: start: 20050412, end: 20050412
  3. LANSOPRAZOLE [Concomitant]
  4. ESTRADIOL [Concomitant]
  5. PARACETAMOL WITH CODEINE PHOSPHATE [Concomitant]
  6. BISACODYL [Concomitant]
  7. ATENOLOL [Concomitant]
  8. ASPIRIN [Concomitant]
  9. CLOPIDOGREL [Concomitant]
  10. SIMVASTATIN [Concomitant]
  11. RAMIPRIL [Concomitant]
  12. NITROGLYCERIN [Concomitant]

REACTIONS (2)
  - CHEST PAIN [None]
  - DIZZINESS [None]
